FAERS Safety Report 13615084 (Version 1)
Quarter: 2017Q2

REPORT INFORMATION
  Report Type: Report from Study
  Country: JP (occurrence: JP)
  Receive Date: 20170606
  Receipt Date: 20170606
  Transmission Date: 20170830
  Serious: Yes (Life-Threatening)
  Sender: FDA-Public Use
  Company Number: JP-UCBSA-2017021721

PATIENT
  Age: 85 Year
  Sex: Female
  Weight: 64 kg

DRUGS (10)
  1. ADONA [Concomitant]
     Active Substance: CARBAZOCHROME SODIUM SULFONATE
     Indication: PRODUCT USED FOR UNKNOWN INDICATION
     Dosage: 50 MG, ONCE DAILY (QD)
     Route: 065
     Dates: start: 20161227, end: 20161227
  2. TRANEXAMIC ACID. [Concomitant]
     Active Substance: TRANEXAMIC ACID
     Indication: PRODUCT USED FOR UNKNOWN INDICATION
     Dosage: 1000 MG, ONCE DAILY (QD)
     Route: 065
     Dates: start: 20161227, end: 20161227
  3. NICARDIPINE HYDROCHLORIDE. [Concomitant]
     Active Substance: NICARDIPINE HYDROCHLORIDE
     Indication: PRODUCT USED FOR UNKNOWN INDICATION
     Dosage: 50 MG, ONCE DAILY (QD)
     Route: 065
     Dates: start: 20161227, end: 20161227
  4. BIO-THREE [Concomitant]
     Active Substance: HERBALS
     Indication: PRODUCT USED FOR UNKNOWN INDICATION
     Dosage: 1 DF, 3X/DAY (TID)
     Route: 048
     Dates: start: 20170111, end: 20170112
  5. SULBACILLIN [Concomitant]
     Active Substance: AMPICILLIN SODIUM\SULBACTAM SODIUM
     Indication: PRODUCT USED FOR UNKNOWN INDICATION
     Dosage: 3 G, ONCE DAILY (QD)
     Route: 065
     Dates: start: 20170112, end: 20170112
  6. MEROPENEM. [Concomitant]
     Active Substance: MEROPENEM
     Indication: PRODUCT USED FOR UNKNOWN INDICATION
     Dosage: 0.5 G, 3X/DAY (TID)
     Route: 065
     Dates: start: 20170112, end: 20170126
  7. LEVETIRACETAM. [Suspect]
     Active Substance: LEVETIRACETAM
     Dosage: 1000 MG, 2X/DAY (BID)
     Route: 048
     Dates: start: 20161230, end: 20170112
  8. LEVETIRACETAM. [Suspect]
     Active Substance: LEVETIRACETAM
     Indication: PARTIAL SEIZURES WITH SECONDARY GENERALISATION
     Dosage: 500 MG, 2X/DAY (BID)
     Route: 048
     Dates: start: 20161215, end: 20161227
  9. E KEPPRA [Suspect]
     Active Substance: LEVETIRACETAM
     Indication: PARTIAL SEIZURES WITH SECONDARY GENERALISATION
     Dosage: 1000 MG, 2X/DAY (BID)
     Route: 041
     Dates: start: 20161227, end: 20161229
  10. SANGLOPOR [Concomitant]
     Active Substance: HUMAN IMMUNOGLOBULIN G
     Indication: PRODUCT USED FOR UNKNOWN INDICATION
     Route: 065
     Dates: start: 20170112, end: 20170114

REACTIONS (3)
  - Cholangitis [Recovering/Resolving]
  - Pancreatitis [Recovering/Resolving]
  - Cholecystitis [Recovering/Resolving]

NARRATIVE: CASE EVENT DATE: 20170112
